FAERS Safety Report 16155668 (Version 2)
Quarter: 2019Q2

REPORT INFORMATION
  Report Type: Spontaneous
  Country: PL (occurrence: PL)
  Receive Date: 20190404
  Receipt Date: 20190430
  Transmission Date: 20190711
  Serious: Yes (Other)
  Sender: FDA-Public Use
  Company Number: PL-ROCHE-2296640

PATIENT
  Sex: Male
  Weight: 105 kg

DRUGS (9)
  1. BISEPTOL [Concomitant]
     Active Substance: SULFAMETHOXAZOLE\TRIMETHOPRIM
     Indication: INFECTION PROPHYLAXIS
     Dosage: 1/2D
     Route: 048
  2. SERETIDE [Concomitant]
     Active Substance: FLUTICASONE PROPIONATE\SALMETEROL XINAFOATE
     Indication: CHRONIC OBSTRUCTIVE PULMONARY DISEASE
     Route: 055
  3. MILURIT [Concomitant]
     Active Substance: ALLOPURINOL
     Indication: HYPERURICAEMIA
     Route: 048
  4. NEBILENIN [Concomitant]
     Indication: HYPERTENSION
     Route: 048
  5. GAZYVARO [Suspect]
     Active Substance: OBINUTUZUMAB
     Indication: CHRONIC LYMPHOCYTIC LEUKAEMIA
     Route: 042
  6. TOLURA [Concomitant]
     Indication: HYPERTENSION
     Route: 048
  7. HEVIRAN [ACICLOVIR] [Concomitant]
     Indication: INFECTION PROPHYLAXIS
     Dosage: 2X400MG, 2X1
     Route: 048
  8. TRIFAS [TORASEMIDE] [Concomitant]
     Indication: HYPERTENSION
     Route: 048
  9. ATORIS [Concomitant]
     Active Substance: ATORVASTATIN CALCIUM
     Indication: HYPERCHOLESTEROLAEMIA
     Route: 065

REACTIONS (1)
  - Anaphylactic shock [Recovered/Resolved]
